FAERS Safety Report 16148803 (Version 5)
Quarter: 2019Q3

REPORT INFORMATION
  Report Type: Spontaneous
  Country: DE (occurrence: DE)
  Receive Date: 20190402
  Receipt Date: 20190924
  Transmission Date: 20191004
  Serious: Yes (Hospitalization, Disabling, Other)
  Sender: FDA-Public Use
  Company Number: PHHY2019DE072957

PATIENT
  Sex: Female
  Weight: 120 kg

DRUGS (12)
  1. VALSACOR [Concomitant]
     Active Substance: VALSARTAN
     Indication: PRODUCT USED FOR UNKNOWN INDICATION
     Dosage: UNK
     Route: 065
  2. VALSARTAN. [Suspect]
     Active Substance: VALSARTAN
     Indication: HYPERTENSION
     Dosage: 1 DF, QD (IN THE EVENINGS)
     Route: 065
     Dates: end: 20180912
  3. AMLODIPINE [Concomitant]
     Active Substance: AMLODIPINE BESYLATE
     Indication: PRODUCT USED FOR UNKNOWN INDICATION
     Dosage: 5 MG, BID (IN THE MORNING AND EVENING)
     Route: 065
     Dates: start: 2005
  4. VALSARTAN. [Concomitant]
     Active Substance: VALSARTAN
     Indication: PRODUCT USED FOR UNKNOWN INDICATION
     Dosage: 1 DF, QD (IN THE EVENING)
     Route: 065
     Dates: start: 20170331
  5. VALSARTAN COMP [Suspect]
     Active Substance: HYDROCHLOROTHIAZIDE\VALSARTAN
     Dosage: 1 DF, QD (IN THE MORNINGS)
     Route: 065
  6. VALSARTAN COMP [Suspect]
     Active Substance: HYDROCHLOROTHIAZIDE\VALSARTAN
     Indication: HYPERTENSION
     Dosage: 1 DF, QD (IN THE MORNINGS)
     Route: 065
     Dates: end: 20180912
  7. VALSARTAN COMP [Suspect]
     Active Substance: HYDROCHLOROTHIAZIDE\VALSARTAN
     Dosage: 1 DF, QD (IN THE MORNINGS)
     Route: 065
     Dates: start: 201412
  8. VALSARTAN. [Suspect]
     Active Substance: VALSARTAN
     Dosage: 0.5 DF, QD (IN THE EVENINGS)
     Route: 065
  9. VALSARTAN AND HYDROCHLOROTHIAZIDE [Concomitant]
     Active Substance: HYDROCHLOROTHIAZIDE\VALSARTAN
     Indication: PRODUCT USED FOR UNKNOWN INDICATION
     Dosage: 1 DF, QD (IN THE MORNINGS)
     Route: 065
     Dates: start: 20170331
  10. NEBIVOLOL. [Concomitant]
     Active Substance: NEBIVOLOL
     Indication: PRODUCT USED FOR UNKNOWN INDICATION
     Dosage: 5 MG, QD (IN THE EVENINGS)
     Route: 065
     Dates: start: 2012
  11. ASPIRIN. [Concomitant]
     Active Substance: ASPIRIN
     Indication: PRODUCT USED FOR UNKNOWN INDICATION
     Dosage: UNK
     Route: 065
     Dates: start: 2009, end: 2011
  12. VALSARTAN 1 A PHARMA [Suspect]
     Active Substance: VALSARTAN
     Indication: PRODUCT USED FOR UNKNOWN INDICATION
     Dosage: 1 DF, BID
     Route: 065

REACTIONS (25)
  - General physical health deterioration [Unknown]
  - Pain in extremity [Unknown]
  - Headache [Unknown]
  - Abdominal pain [Unknown]
  - Peritonitis [Unknown]
  - Deep vein thrombosis [Unknown]
  - Leukopenia [Unknown]
  - Renal cyst [Unknown]
  - Dyspnoea exertional [Unknown]
  - Polyneuropathy [Unknown]
  - Hypochromic anaemia [Unknown]
  - Ovarian cancer [Recovered/Resolved with Sequelae]
  - Dysuria [Unknown]
  - Hypokalaemia [Unknown]
  - Iron deficiency anaemia [Unknown]
  - Weight decreased [Unknown]
  - Nocturia [Unknown]
  - Pulmonary embolism [Unknown]
  - Thrombocytopenia [Unknown]
  - Hepatic cyst [Unknown]
  - Abdominal wound dehiscence [Unknown]
  - Fatigue [Unknown]
  - Malignant peritoneal neoplasm [Unknown]
  - Vitamin B12 decreased [Unknown]
  - Scar pain [Unknown]

NARRATIVE: CASE EVENT DATE: 2007
